FAERS Safety Report 15251198 (Version 1)
Quarter: 2018Q3

REPORT INFORMATION
  Report Type: Spontaneous
  Country: US (occurrence: US)
  Receive Date: 20180807
  Receipt Date: 20180807
  Transmission Date: 20181010
  Serious: Yes (Other)
  Sender: FDA-Public Use
  Company Number: US-BAYER-2018-141896

PATIENT
  Sex: Female

DRUGS (1)
  1. BETASERON [Suspect]
     Active Substance: INTERFERON BETA-1B
     Indication: MULTIPLE SCLEROSIS
     Dosage: 0.3 MG, UNK

REACTIONS (6)
  - Gait disturbance [None]
  - Parkinsonism [None]
  - Dysgraphia [None]
  - Multiple sclerosis relapse [None]
  - Renal failure [None]
  - Inappropriate schedule of drug administration [None]
